FAERS Safety Report 23959207 (Version 1)
Quarter: 2024Q2

REPORT INFORMATION
  Report Type: Spontaneous
  Country: DE (occurrence: DE)
  Receive Date: 20240611
  Receipt Date: 20240611
  Transmission Date: 20240716
  Serious: Yes (Hospitalization, Other)
  Sender: FDA-Public Use
  Company Number: DE-VELOXIS PHARMACEUTICALS, INC.-2024-VEL-00324

PATIENT
  Sex: Female

DRUGS (1)
  1. ENVARSUS XR [Suspect]
     Active Substance: TACROLIMUS
     Indication: Transplant rejection
     Dosage: UNK
     Route: 048

REACTIONS (3)
  - Transplant rejection [Recovered/Resolved]
  - Polyneuropathy [Unknown]
  - Condition aggravated [Unknown]
